FAERS Safety Report 8574074-0 (Version None)
Quarter: 2012Q3

REPORT INFORMATION
  Report Type: 
  Country: None (occurrence: None)
  Receive Date: 20120806
  Receipt Date: 20120731
  Transmission Date: 20120928
  Serious: Yes (Death, Other)
  Sender: FDA-Public Use
  Company Number: PHHO2005JP18868

PATIENT
  Sex: Female

DRUGS (14)
  1. ZOLEDRONOC ACID [Suspect]
     Dosage: 4 MG (PER ADMINISTRATION)
     Route: 041
     Dates: start: 20050422, end: 20050422
  2. XELODA [Concomitant]
     Dosage: 1800 MG, UNK
     Dates: start: 20050507, end: 20050520
  3. NAVELBINE [Concomitant]
     Dosage: 30 MG, UNK
     Route: 042
     Dates: start: 20050523, end: 20050523
  4. FULCALIQ 2 [Concomitant]
     Indication: HYPERCALCAEMIA OF MALIGNANCY
     Dosage: 2000 ML, UNK
     Dates: start: 20041027, end: 20050413
  5. ZOLEDRONOC ACID [Suspect]
     Indication: HYPERCALCAEMIA OF MALIGNANCY
     Dosage: 4 MG (PER ADMINISTRATION)
     Route: 041
     Dates: start: 20050414, end: 20050414
  6. AREDIA [Concomitant]
     Indication: HYPERCALCAEMIA OF MALIGNANCY
     Dosage: 45 MG, UNK
     Dates: start: 20041027, end: 20050531
  7. ZOLEDRONOC ACID [Suspect]
     Dosage: 4 MG (PER ADMINISTRATION)
     Route: 041
     Dates: start: 20050511, end: 20050511
  8. ZOLEDRONOC ACID [Suspect]
     Dosage: 4 MG (PER ADMINISTRATION)
     Route: 041
     Dates: start: 20050526, end: 20050526
  9. PREDNISOLONE [Concomitant]
     Dosage: 40 MG, UNK
     Route: 042
     Dates: start: 20040123, end: 20050527
  10. LASIX [Concomitant]
     Indication: HYPOCALCAEMIA
     Dosage: 40 MG, UNK
     Route: 042
     Dates: start: 20041102
  11. FAMOTIDINE [Concomitant]
     Dosage: 40 MG, UNK
     Route: 042
     Dates: start: 20050113
  12. HERCEPTIN [Concomitant]
     Indication: HYPERCALCAEMIA OF MALIGNANCY
     Dosage: 150 MG, UNK
     Route: 042
     Dates: start: 20041130, end: 20050517
  13. TOPOTECAN [Concomitant]
     Dosage: 130 MG, UNK
     Route: 042
     Dates: start: 20050201, end: 20050414
  14. POTASSIUM CHLORIDE [Concomitant]
     Dosage: 40 ML, UNK
     Route: 042
     Dates: start: 20050413, end: 20050527

REACTIONS (3)
  - BLOOD ALBUMIN DECREASED [None]
  - NEOPLASM MALIGNANT [None]
  - NEOPLASM PROGRESSION [None]
